FAERS Safety Report 5604958-4 (Version None)
Quarter: 2008Q1

REPORT INFORMATION
  Report Type: 
  Country: None (occurrence: None)
  Receive Date: 20080128
  Receipt Date: 20080117
  Transmission Date: 20080703
  Serious: Yes (Death)
  Sender: FDA-Public Use
  Company Number: TW-BOEHRINGER INGELHEIM PHARMACEUTICALS, INC.-2008-DE-00341GD

PATIENT
  Age: 44 Year
  Sex: Female

DRUGS (4)
  1. IPRATROPIUM BROMIDE [Suspect]
     Indication: ASTHMA
     Route: 055
  2. HYDROCORTISONE [Suspect]
     Indication: ASTHMA
     Route: 042
  3. TERBUTALINE SULFATE [Suspect]
     Indication: ASTHMA
     Route: 055
  4. AMINOPHYLLINE [Suspect]
     Indication: ASTHMA
     Route: 042

REACTIONS (2)
  - DRUG INEFFECTIVE [None]
  - RESPIRATORY FAILURE [None]
